FAERS Safety Report 9313602 (Version 1)
Quarter: 2013Q2

REPORT INFORMATION
  Report Type: Spontaneous
  Country: BR (occurrence: BR)
  Receive Date: 20130528
  Receipt Date: 20130528
  Transmission Date: 20140414
  Serious: Yes (Hospitalization)
  Sender: FDA-Public Use
  Company Number: BR-B.I. PHARMACEUTICALS,INC./RIDGEFIELD-2013-BR-00584BR

PATIENT
  Age: 84 Year
  Sex: Male
  Weight: 62.5 kg

DRUGS (3)
  1. SPIRIVA RESPIMAT [Suspect]
     Indication: EMPHYSEMA
     Dosage: 5 MCG
     Route: 055
     Dates: start: 2011
  2. SPIRIVA RESPIMAT [Suspect]
     Indication: DYSPNOEA
  3. ALENIA [Concomitant]
     Indication: EMPHYSEMA

REACTIONS (1)
  - Dyspnoea [Recovered/Resolved]
